FAERS Safety Report 19772128 (Version 1)
Quarter: 2021Q3

REPORT INFORMATION
  Report Type: Report from Study
  Country: US (occurrence: US)
  Receive Date: 20210901
  Receipt Date: 20210901
  Transmission Date: 20211014
  Serious: Yes (Hospitalization)
  Sender: FDA-Public Use
  Company Number: US-PFIZER INC-202101079401

PATIENT
  Age: 61 Year
  Sex: Female
  Weight: 60.1 kg

DRUGS (5)
  1. ETOPOSIDE. [Suspect]
     Active Substance: ETOPOSIDE
     Indication: PLASMA CELL MYELOMA
     Dosage: 68 MG, 1X/DAY EVERY 24 HOURS (1 IN 24 HR)
     Route: 042
     Dates: start: 20200915, end: 20200919
  2. CISPLATIN. [Suspect]
     Active Substance: CISPLATIN
     Indication: PLASMA CELL MYELOMA
     Dosage: 17 MG, DAILY (1 IN 1 D)
     Route: 042
     Dates: start: 20200915, end: 20200919
  3. DOXORUBICIN HCL [Suspect]
     Active Substance: DOXORUBICIN HYDROCHLORIDE
     Indication: PLASMA CELL MYELOMA
     Dosage: 17 MG, EVERY 24 HOURS (1 IN 24 HR)
     Route: 042
     Dates: start: 20200915, end: 20200919
  4. BORTEZOMIB. [Suspect]
     Active Substance: BORTEZOMIB
     Indication: PLASMA CELL MYELOMA
     Dosage: 1.7 MG, EVERY 72 HOURS (1 IN 72 HR)
     Route: 058
     Dates: start: 20200915, end: 20200918
  5. CYCLOPHOSPHAMIDE. [Suspect]
     Active Substance: CYCLOPHOSPHAMIDE
     Indication: PLASMA CELL MYELOMA
     Dosage: 650 MG, DAILY (1 IN 1 D)
     Route: 042
     Dates: start: 20200915, end: 20200919

REACTIONS (1)
  - Febrile neutropenia [Recovered/Resolved]

NARRATIVE: CASE EVENT DATE: 20200925
